FAERS Safety Report 6100962-0 (Version None)
Quarter: 2009Q1

REPORT INFORMATION
  Report Type: 
  Country: None (occurrence: None)
  Receive Date: 20090227
  Receipt Date: 20090218
  Transmission Date: 20090719
  Serious: Yes (Other)
  Sender: FDA-Public Use
  Company Number: 231396K09USA

PATIENT
  Age: 38 Year
  Sex: Female
  Weight: 94 kg

DRUGS (6)
  1. REBIF [Suspect]
     Indication: MULTIPLE SCLEROSIS
     Dosage: 44 MCG, 3 IN 1 WEEKS, SUBCUTANEOUS
     Route: 058
     Dates: start: 20080206
  2. SOLU-MEDROL [Suspect]
     Dosage: , ONCE,
     Dates: start: 20080901, end: 20080901
  3. SOLU-MEDROL [Suspect]
     Dosage: , ONCE,
     Dates: start: 20081022, end: 20081022
  4. SOLU-MEDROL [Suspect]
     Dosage: , ONCE,
     Dates: start: 20081115, end: 20081115
  5. GABAPENTIN [Concomitant]
  6. LISINOPRIL [Concomitant]

REACTIONS (2)
  - DIABETES MELLITUS [None]
  - OBESITY [None]
